FAERS Safety Report 12673158 (Version 2)
Quarter: 2016Q3

REPORT INFORMATION
  Report Type: Report from Study
  Country: GB (occurrence: GB)
  Receive Date: 20160822
  Receipt Date: 20160921
  Transmission Date: 20161109
  Serious: Yes (Other)
  Sender: FDA-Public Use
  Company Number: PHHO2016GB011808

PATIENT
  Age: 68 Year
  Sex: Male
  Weight: 122 kg

DRUGS (2)
  1. INC424 [Suspect]
     Active Substance: RUXOLITINIB
     Indication: PRIMARY MYELOFIBROSIS
     Dosage: 10 MG, 3 TIMES/ WEEK
     Route: 048
     Dates: start: 20140115
  2. LBH589 [Suspect]
     Active Substance: PANOBINOSTAT
     Indication: PRIMARY MYELOFIBROSIS
     Dosage: 15 MG, EVERY 2ND WEEK
     Route: 048

REACTIONS (1)
  - Squamous cell carcinoma [Not Recovered/Not Resolved]

NARRATIVE: CASE EVENT DATE: 20160624
